FAERS Safety Report 10925569 (Version 2)
Quarter: 2015Q1

REPORT INFORMATION
  Report Type: Spontaneous
  Country: US (occurrence: US)
  Receive Date: 20150318
  Receipt Date: 20150327
  Transmission Date: 20150721
  Serious: Yes (Hospitalization, Other)
  Sender: FDA-Public Use
  Company Number: US-ABBVIE-15K-163-1358935-00

PATIENT
  Age: 62 Year
  Sex: Male
  Weight: 75.82 kg

DRUGS (5)
  1. DEXAMETHASONE. [Suspect]
     Active Substance: DEXAMETHASONE
     Indication: RHEUMATOID ARTHRITIS
     Route: 065
  2. FOSAMAX [Concomitant]
     Active Substance: ALENDRONATE SODIUM
     Indication: PRODUCT USED FOR UNKNOWN INDICATION
  3. HUMIRA [Suspect]
     Active Substance: ADALIMUMAB
     Indication: RHEUMATOID ARTHRITIS
     Route: 065
     Dates: start: 2002, end: 20150220
  4. PRILOSEC [Concomitant]
     Active Substance: OMEPRAZOLE MAGNESIUM
     Indication: PRODUCT USED FOR UNKNOWN INDICATION
  5. KRILL OIL [Concomitant]
     Active Substance: DIETARY SUPPLEMENT
     Indication: PRODUCT USED FOR UNKNOWN INDICATION

REACTIONS (15)
  - Red blood cell sedimentation rate increased [Not Recovered/Not Resolved]
  - Blood glucose increased [Not Recovered/Not Resolved]
  - Abnormal behaviour [Recovered/Resolved]
  - Cataract [Recovered/Resolved]
  - Pulmonary thrombosis [Recovering/Resolving]
  - Aspiration [Recovered/Resolved]
  - Coronary artery occlusion [Recovering/Resolving]
  - Thrombosis [Recovering/Resolving]
  - Dyspnoea [Recovered/Resolved]
  - Vomiting [Recovered/Resolved]
  - Cough [Not Recovered/Not Resolved]
  - Poor quality drug administered [Unknown]
  - Dyspnoea [Recovered/Resolved]
  - C-reactive protein increased [Not Recovered/Not Resolved]
  - Red blood cell count decreased [Not Recovered/Not Resolved]

NARRATIVE: CASE EVENT DATE: 20150202
